FAERS Safety Report 9604295 (Version 1)
Quarter: 2013Q4

REPORT INFORMATION
  Report Type: Report from Study
  Country: CA (occurrence: CA)
  Receive Date: 20131008
  Receipt Date: 20131008
  Transmission Date: 20140711
  Serious: Yes (Death)
  Sender: FDA-Public Use
  Company Number: PHHY2013CA112048

PATIENT
  Age: 72 Year
  Sex: Male

DRUGS (1)
  1. ZOMETA [Suspect]
     Indication: BLADDER CANCER
     Dosage: UNK UKN, UNK
     Route: 042
     Dates: start: 20120215, end: 201305

REACTIONS (1)
  - Death [Fatal]
